FAERS Safety Report 4761301-0 (Version None)
Quarter: 2005Q3

REPORT INFORMATION
  Report Type: 
  Country: None (occurrence: None)
  Receive Date: 20050901
  Receipt Date: 20050901
  Transmission Date: 20060218
  Serious: Yes (Death)
  Sender: FDA-Public Use
  Company Number: None

PATIENT
  Age: 83 Year
  Sex: Female

DRUGS (9)
  1. PLAVIX [Suspect]
     Indication: ACUTE MYOCARDIAL INFARCTION
     Dosage: 75MG  DAILY  PO
     Route: 048
     Dates: start: 20050513, end: 20050516
  2. ASPIRIN [Suspect]
     Indication: ACUTE MYOCARDIAL INFARCTION
     Dosage: 325MG   DAILY  PO
     Route: 048
     Dates: start: 20050513, end: 20050516
  3. HEPARIN [Concomitant]
  4. CLOPIDOGREL [Concomitant]
  5. METOPROLOL [Concomitant]
  6. DIGOXIN [Concomitant]
  7. AMIODARONE [Concomitant]
  8. FUROSEMIDE [Concomitant]
  9. LEVOTHYROXINE [Concomitant]

REACTIONS (13)
  - ACTIVATED PARTIAL THROMBOPLASTIN TIME PROLONGED [None]
  - ACUTE MYOCARDIAL INFARCTION [None]
  - ATRIAL FIBRILLATION [None]
  - DEPRESSED LEVEL OF CONSCIOUSNESS [None]
  - ELECTROCARDIOGRAM ST SEGMENT ELEVATION [None]
  - HAEMORRHAGE [None]
  - INJECTION SITE HAEMORRHAGE [None]
  - INTRAVENTRICULAR HAEMORRHAGE [None]
  - MENTAL STATUS CHANGES [None]
  - PERICARDIAL EFFUSION [None]
  - PLATELET COUNT DECREASED [None]
  - PYREXIA [None]
  - THERAPY NON-RESPONDER [None]
